FAERS Safety Report 6447415-8 (Version None)
Quarter: 2009Q4

REPORT INFORMATION
  Report Type: 
  Country: None (occurrence: None)
  Receive Date: 20091119
  Receipt Date: 20090120
  Transmission Date: 20100525
  Serious: Yes (Other)
  Sender: FDA-Public Use
  Company Number: US-AMGEN-QUU277740

PATIENT
  Sex: Female
  Weight: 54.5 kg

DRUGS (2)
  1. ENBREL [Suspect]
     Indication: RHEUMATOID ARTHRITIS
     Route: 058
     Dates: start: 20080410
  2. METHOTREXATE [Concomitant]
     Dates: start: 20080410

REACTIONS (15)
  - AGITATION [None]
  - ALOPECIA [None]
  - ANAL HAEMORRHAGE [None]
  - ARTHRALGIA [None]
  - DEPRESSION [None]
  - DIARRHOEA [None]
  - EYELID OEDEMA [None]
  - INSOMNIA [None]
  - IRRITABILITY [None]
  - MELAENA [None]
  - SEASONAL ALLERGY [None]
  - THINKING ABNORMAL [None]
  - URINARY TRACT INFECTION [None]
  - VISION BLURRED [None]
  - WEIGHT DECREASED [None]
